FAERS Safety Report 5763840-2 (Version None)
Quarter: 2008Q2

REPORT INFORMATION
  Report Type: 
  Country: None (occurrence: None)
  Receive Date: 20080602
  Receipt Date: 20080219
  Transmission Date: 20081010
  Serious: Yes (Other)
  Sender: FDA-Public Use
  Company Number: PHEH2008US02016

PATIENT
  Age: 84 Year
  Sex: Female
  Weight: 68.9 kg

DRUGS (1)
  1. TEKTURNA [Suspect]
     Indication: HYPERTENSION
     Dosage: 300 MG, QD
     Dates: start: 20071212, end: 20080208

REACTIONS (1)
  - HYPERTENSIVE CRISIS [None]
